FAERS Safety Report 7428573-5 (Version None)
Quarter: 2011Q2

REPORT INFORMATION
  Report Type: 
  Country: None (occurrence: None)
  Receive Date: 20110412
  Receipt Date: 20110405
  Transmission Date: 20111010
  Serious: Yes (Hospitalization, Other)
  Sender: FDA-Public Use
  Company Number: WAES 1102USA02282

PATIENT
  Age: 74 Year
  Sex: Male
  Weight: 92.0802 kg

DRUGS (10)
  1. TOPROL-XL [Concomitant]
  2. HYZAAR [Suspect]
     Indication: HYPERTENSION
     Dosage: 50-12.5 MG/DAILY/PO
     Route: 048
     Dates: start: 20000101, end: 20110106
  3. CARTIA XT [Suspect]
     Indication: HYPERTENSION
     Dosage: 300 MG/DAILY/PO
     Route: 048
     Dates: start: 20000101, end: 20110106
  4. VEGF TRAP-EYE UNK [Suspect]
     Indication: AGE-RELATED MACULAR DEGENERATION
     Dosage: Q4W ;2 MG/PRN
     Dates: start: 20071031, end: 20081028
  5. VEGF TRAP-EYE UNK [Suspect]
     Indication: AGE-RELATED MACULAR DEGENERATION
     Dosage: Q4W ;2 MG/PRN
     Dates: start: 20081118, end: 20090924
  6. VEGF TRAP-EYE UNK [Suspect]
     Indication: AGE-RELATED MACULAR DEGENERATION
     Dosage: Q4W ;2 MG/PRN
     Dates: start: 20100127
  7. IMDUR [Suspect]
     Indication: HYPERTENSION
     Dosage: 30 MG/DAILY/PO
     Route: 048
     Dates: start: 20000101, end: 20110106
  8. ZOCOR [Concomitant]
  9. COUMADIN [Concomitant]
  10. MAG OX [Concomitant]

REACTIONS (3)
  - HYPOTENSION [None]
  - DIZZINESS [None]
  - ANGINA PECTORIS [None]
